FAERS Safety Report 6292852-8 (Version None)
Quarter: 2009Q3

REPORT INFORMATION
  Report Type: 
  Country: None (occurrence: None)
  Receive Date: 20090731
  Receipt Date: 20090722
  Transmission Date: 20100115
  Serious: Yes (Other)
  Sender: FDA-Public Use
  Company Number: PHHY2009MX30764

PATIENT
  Sex: Female

DRUGS (2)
  1. DIOVAN [Suspect]
     Indication: HYPERTENSION
     Dosage: 1 TABLET (320 MG)/DAY
     Route: 048
     Dates: start: 20051201, end: 20080601
  2. CHEMOTHERAPEUTICS NOS [Concomitant]

REACTIONS (2)
  - BREAST CANCER [None]
  - HYPOTENSION [None]
